FAERS Safety Report 7597709 (Version 2)
Quarter: 2016Q1

REPORT INFORMATION
  Report Type: Spontaneous
  Country: US (occurrence: US)
  Receive Date: 20100920
  Receipt Date: 20160113
  Transmission Date: 20160526
  Serious: Yes (Hospitalization, Other)
  Sender: FDA-Public Use
  Company Number: US-BRISTOL-MYERS SQUIBB COMPANY-15274574

PATIENT
  Age: 24 Year
  Sex: Female

DRUGS (1)
  1. AMPICILLIN TRIHYDRATE. [Suspect]
     Active Substance: AMPICILLIN TRIHYDRATE
     Indication: ANTIBIOTIC PROPHYLAXIS
     Dosage: 2 G, INTERMITTENT
     Route: 042

REACTIONS (5)
  - Maternal exposure during pregnancy [Recovered/Resolved]
  - Jarisch-Herxheimer reaction [Unknown]
  - Premature delivery [Unknown]
  - Premature labour [Unknown]
  - Caesarean section [Unknown]
